FAERS Safety Report 16782989 (Version 2)
Quarter: 2020Q3

REPORT INFORMATION
  Report Type: Report from Study
  Country: PL (occurrence: PL)
  Receive Date: 20190906
  Receipt Date: 20200818
  Transmission Date: 20201102
  Serious: Yes (Other)
  Sender: FDA-Public Use
  Company Number: PL-REGENERON PHARMACEUTICALS, INC.-2019-51350

PATIENT

DRUGS (7)
  1. CEMIPLIMAB [Suspect]
     Active Substance: CEMIPLIMAB
     Indication: NON-SMALL CELL LUNG CANCER STAGE III
     Dosage: 350 MG, Q3W
     Route: 042
     Dates: start: 20190516, end: 20190627
  2. PACLITAXEL. [Suspect]
     Active Substance: PACLITAXEL
     Indication: NON-SMALL CELL LUNG CANCER STAGE III
     Dosage: 200 MG/M2, Q3W
     Route: 042
     Dates: start: 20190516
  3. TRAMADOL. [Concomitant]
     Active Substance: TRAMADOL
     Indication: SPINAL OSTEOARTHRITIS
     Dosage: 150 MG, BID
     Route: 048
  4. NITRAZEPAM [Concomitant]
     Active Substance: NITRAZEPAM
     Indication: SLEEP DISORDER
     Dosage: 5 MG, PRN
     Route: 048
     Dates: start: 20190516
  5. IPILIMUMAB [Suspect]
     Active Substance: IPILIMUMAB
     Indication: NON-SMALL CELL LUNG CANCER STAGE III
     Dosage: 50 MG, Q6W
     Route: 042
     Dates: start: 20190516, end: 20190627
  6. CARBOPLATIN. [Suspect]
     Active Substance: CARBOPLATIN
     Indication: NON-SMALL CELL LUNG CANCER STAGE III
     Dosage: AUC OF 5 OR 6, Q3W
     Route: 042
     Dates: start: 20190516
  7. KETOPROFEN. [Concomitant]
     Active Substance: KETOPROFEN
     Indication: SPINAL OSTEOARTHRITIS
     Dosage: 100 MG, BID
     Route: 048
     Dates: start: 20190517

REACTIONS (1)
  - Interstitial lung disease [Recovering/Resolving]

NARRATIVE: CASE EVENT DATE: 20190718
